FAERS Safety Report 22542189 (Version 1)
Quarter: 2023Q2

REPORT INFORMATION
  Report Type: Spontaneous
  Country: US (occurrence: US)
  Receive Date: 20230609
  Receipt Date: 20230609
  Transmission Date: 20230721
  Serious: Yes (Other)
  Sender: FDA-Public Use
  Company Number: US-Stemline Therapeutics, Inc.-2023ST001104

PATIENT
  Sex: Male

DRUGS (1)
  1. ELZONRIS [Suspect]
     Active Substance: TAGRAXOFUSP-ERZS
     Indication: Product used for unknown indication
     Dosage: ONLY RECEIVED C1 D1
     Route: 042
     Dates: start: 20230522, end: 20230523

REACTIONS (3)
  - Pneumonia [Unknown]
  - Hypoalbuminaemia [Unknown]
  - Pyrexia [Unknown]

NARRATIVE: CASE EVENT DATE: 20230501
